FAERS Safety Report 4540959-5 (Version None)
Quarter: 2004Q4

REPORT INFORMATION
  Report Type: 
  Country: None (occurrence: None)
  Receive Date: 20041229
  Receipt Date: 20041228
  Transmission Date: 20050328
  Serious: Yes (Other)
  Sender: FDA-Public Use
  Company Number: DE-GLAXOSMITHKLINE-D0045536A

PATIENT
  Age: 48 Year
  Sex: Female

DRUGS (1)
  1. ESKAZOLE [Suspect]
     Indication: ECHINOCOCCIASIS
     Route: 065
     Dates: start: 20041005, end: 20041101

REACTIONS (1)
  - ALANINE AMINOTRANSFERASE INCREASED [None]
